FAERS Safety Report 5370692-1 (Version None)
Quarter: 2007Q2

REPORT INFORMATION
  Report Type: 
  Country: None (occurrence: None)
  Receive Date: 20070626
  Receipt Date: 20070618
  Transmission Date: 20071010
  Serious: Yes (Other)
  Sender: FDA-Public Use
  Company Number: US-SANOFI-SYNTHELABO-A03200703861

PATIENT
  Age: 51 Year
  Sex: Male

DRUGS (4)
  1. AMBIEN [Suspect]
     Indication: INSOMNIA
     Dosage: VARIOUS DOSES USED: STARTED 10MG AND INCREASED DOSE TO 40 MG HS
     Route: 048
     Dates: start: 20010101, end: 20060901
  2. TRAZODONE HCL [Concomitant]
     Route: 048
  3. PROZAC [Concomitant]
     Dosage: UNK
     Route: 048
  4. AMBIEN [Suspect]
     Dosage: UNK
     Route: 048
     Dates: end: 20060901

REACTIONS (8)
  - ACTIVITIES OF DAILY LIVING IMPAIRED [None]
  - DRUG ABUSER [None]
  - DRUG DEPENDENCE [None]
  - DRUG WITHDRAWAL SYNDROME [None]
  - FEELING OF DESPAIR [None]
  - INSOMNIA [None]
  - PARANOIA [None]
  - PSYCHOTIC DISORDER [None]
